FAERS Safety Report 19039552 (Version 1)
Quarter: 2021Q1

REPORT INFORMATION
  Report Type: Report from Study
  Country: US (occurrence: US)
  Receive Date: 20210322
  Receipt Date: 20210322
  Transmission Date: 20210420
  Serious: Yes (Hospitalization)
  Sender: FDA-Public Use
  Company Number: US-VERTEX PHARMACEUTICALS-2021-004305

PATIENT
  Age: 52 Year
  Sex: Female

DRUGS (1)
  1. TRIKAFTA [Suspect]
     Active Substance: ELEXACAFTOR\IVACAFTOR\TEZACAFTOR
     Indication: CYSTIC FIBROSIS
     Dosage: 100 MG ELEXA/ 50 MG TEZA/ 75 MG IVA, FREQ UNK
     Route: 048
     Dates: start: 20191120

REACTIONS (7)
  - Neck pain [Unknown]
  - Infective pulmonary exacerbation of cystic fibrosis [Unknown]
  - Drug hypersensitivity [Unknown]
  - Pharyngeal swelling [Unknown]
  - Laryngitis [Recovered/Resolved]
  - Back pain [Unknown]
  - Urinary tract infection [Unknown]

NARRATIVE: CASE EVENT DATE: 202102
